FAERS Safety Report 5107791-5 (Version None)
Quarter: 2006Q3

REPORT INFORMATION
  Report Type: 
  Country: None (occurrence: None)
  Receive Date: 20060919
  Receipt Date: 20060905
  Transmission Date: 20061208
  Serious: Yes (Death, Hospitalization)
  Sender: FDA-Public Use
  Company Number: US-JNJFOC-20060902199

PATIENT
  Age: 52 Year
  Sex: Female

DRUGS (2)
  1. ACETAMINOPHEN/DIPHENHYDRAMINE [Suspect]
     Indication: SUICIDE ATTEMPT
     Route: 048
  2. PAROXETINE HCL [Suspect]
     Indication: SUICIDE ATTEMPT
     Route: 048

REACTIONS (12)
  - ALCOHOL WITHDRAWAL SYNDROME [None]
  - CARDIAC ARREST [None]
  - COMPLETED SUICIDE [None]
  - DELIRIUM TREMENS [None]
  - DRUG SCREEN POSITIVE [None]
  - DRUG TOXICITY [None]
  - HEPATIC NECROSIS [None]
  - HYPOTENSION [None]
  - METABOLIC ACIDOSIS [None]
  - TACHYCARDIA [None]
  - THROMBOCYTOPENIA [None]
  - UPPER GASTROINTESTINAL HAEMORRHAGE [None]
